FAERS Safety Report 5454050-7 (Version None)
Quarter: 2007Q3

REPORT INFORMATION
  Report Type: 
  Country: None (occurrence: None)
  Receive Date: 20070917
  Receipt Date: 20070228
  Transmission Date: 20080115
  Serious: Yes (Hospitalization, Other)
  Sender: FDA-Public Use
  Company Number: US-ASTRAZENECA-2006UW07066

PATIENT
  Age: 42 Year
  Sex: Female
  Weight: 86.4 kg

DRUGS (2)
  1. SEROQUEL [Suspect]
     Indication: BIPOLAR DISORDER
     Dosage: 100 - 300 MG
     Route: 048
     Dates: start: 20040501
  2. SEROQUEL [Suspect]
     Indication: DEPRESSION
     Dosage: 100 - 300 MG
     Route: 048
     Dates: start: 20040501

REACTIONS (14)
  - ARTHRALGIA [None]
  - BACK PAIN [None]
  - BLOOD CHOLESTEROL INCREASED [None]
  - BONE PAIN [None]
  - CONTUSION [None]
  - COUGH [None]
  - LYMPHADENOPATHY [None]
  - MUSCULOSKELETAL CHEST PAIN [None]
  - NECK MASS [None]
  - OVERDOSE [None]
  - PAIN IN EXTREMITY [None]
  - PANCREATITIS [None]
  - PRURITUS [None]
  - RASH [None]
